FAERS Safety Report 10154050 (Version 3)
Quarter: 2016Q3

REPORT INFORMATION
  Report Type: Report from Study
  Country: US (occurrence: US)
  Receive Date: 20140506
  Receipt Date: 20160810
  Transmission Date: 20161108
  Serious: Yes (Hospitalization, Other)
  Sender: FDA-Public Use
  Company Number: US-AMGEN-USACT2014025643

PATIENT
  Age: 42 Year
  Sex: Male
  Weight: 119.8 kg

DRUGS (5)
  1. PANITUMUMAB [Suspect]
     Active Substance: PANITUMUMAB
     Indication: COLORECTAL CANCER METASTATIC
     Dosage: 719 MG, UNK
     Route: 042
     Dates: start: 20140115, end: 20140213
  2. ADVIL [Concomitant]
     Active Substance: IBUPROFEN
     Indication: PAIN
     Dosage: 200 MG, AS NECESSARY
     Route: 065
     Dates: start: 20131207, end: 20140226
  3. MINOCYCLINE [Concomitant]
     Active Substance: MINOCYCLINE\MINOCYCLINE HYDROCHLORIDE
     Dosage: UNK
  4. PREDNISONE. [Concomitant]
     Active Substance: PREDNISONE
     Dosage: UNK
  5. MEK 162 [Concomitant]
     Active Substance: BINIMETINIB
     Indication: COLORECTAL CANCER METASTATIC
     Dosage: 30 MG, UNK
     Route: 048
     Dates: start: 20140115, end: 20140220

REACTIONS (3)
  - Pulmonary embolism [Unknown]
  - Pneumonia [Not Recovered/Not Resolved]
  - Acute kidney injury [Recovered/Resolved]

NARRATIVE: CASE EVENT DATE: 20140226
